FAERS Safety Report 21590393 (Version 1)
Quarter: 2022Q4

REPORT INFORMATION
  Report Type: Spontaneous
  Country: US (occurrence: US)
  Receive Date: 20221114
  Receipt Date: 20221114
  Transmission Date: 20230113
  Serious: Yes (Hospitalization)
  Sender: FDA-Public Use
  Company Number: US-BIOVITRUM-2022US13043

PATIENT
  Sex: Female
  Weight: 9 kg

DRUGS (7)
  1. SYNAGIS [Suspect]
     Active Substance: PALIVIZUMAB
     Indication: Lung disorder
     Dosage: 100 MG SDV
     Dates: start: 20221018
  2. VITAMIN D3 [Concomitant]
     Active Substance: CHOLECALCIFEROL
     Dosage: 10 (400)/ML DROPS
  3. MULTIVITAMINS WITH IRON [ASCORBIC ACID;CYANOCOBALAMIN;ERGOCALCIFEROL;F [Concomitant]
     Dosage: TABLET
  4. EPINEPHRINE [Concomitant]
     Active Substance: EPINEPHRINE
  5. SYNAGIS [Suspect]
     Active Substance: PALIVIZUMAB
     Indication: Complication associated with device
  6. SYNAGIS [Suspect]
     Active Substance: PALIVIZUMAB
     Indication: Laryngomalacia
  7. SYNAGIS [Suspect]
     Active Substance: PALIVIZUMAB
     Indication: Cardiac disorder

REACTIONS (2)
  - Respiratory syncytial virus infection [Unknown]
  - Weight decreased [Unknown]
